FAERS Safety Report 6973806-2 (Version None)
Quarter: 2010Q3

REPORT INFORMATION
  Report Type: 
  Country: None (occurrence: None)
  Receive Date: 20100909
  Receipt Date: 20100831
  Transmission Date: 20110219
  Serious: Yes (Hospitalization)
  Sender: FDA-Public Use
  Company Number: A0879962A

PATIENT
  Age: 46 Year
  Sex: Male

DRUGS (13)
  1. AVANDIA [Suspect]
     Route: 048
     Dates: start: 20000101, end: 20080101
  2. HUMALOG [Concomitant]
  3. PRINIVIL [Concomitant]
  4. SEPTRA [Concomitant]
  5. FLOMAX [Concomitant]
  6. MIRAPEX [Concomitant]
  7. NEURONTIN [Concomitant]
  8. TRANCIN [Concomitant]
  9. ACIPHEX [Concomitant]
  10. PERCOCET [Concomitant]
  11. LORCET-HD [Concomitant]
  12. FLEXERIL [Concomitant]
  13. ATENOLOL [Concomitant]

REACTIONS (6)
  - CORONARY ARTERY DISEASE [None]
  - DIABETES MELLITUS [None]
  - HYPERTENSION [None]
  - MYOCARDIAL INFARCTION [None]
  - THROMBOSIS [None]
  - TRANSIENT ISCHAEMIC ATTACK [None]
